FAERS Safety Report 9655593 (Version 1)
Quarter: 2013Q4

REPORT INFORMATION
  Report Type: Report from Study
  Country: US (occurrence: US)
  Receive Date: 20131030
  Receipt Date: 20131030
  Transmission Date: 20140711
  Serious: Yes (Death, Other)
  Sender: FDA-Public Use
  Company Number: US-ROCHE-1296767

PATIENT
  Age: 50 Year
  Sex: Male

DRUGS (17)
  1. AVASTIN [Suspect]
     Indication: COLON CANCER
     Route: 065
     Dates: start: 20120207
  2. XELODA [Suspect]
     Indication: COLON CANCER
     Dosage: ON ONE WEEK AND THEN OFF
     Route: 065
     Dates: start: 20130910
  3. FOLINIC ACID [Concomitant]
     Route: 065
     Dates: start: 20120530
  4. FLUOROURACIL [Concomitant]
     Route: 065
     Dates: start: 20120530
  5. IRINOTECAN HYDROCHLORIDE [Concomitant]
     Route: 065
     Dates: start: 20120530
  6. OXALIPLATIN [Concomitant]
     Indication: COLON CANCER
     Route: 065
     Dates: start: 20130910
  7. AMLODIPINE [Concomitant]
     Route: 048
  8. ATENOLOL [Concomitant]
     Route: 048
  9. DEXAMETHASONE PHOSPHATE [Concomitant]
     Dosage: 2  AS DIRECTED INTO BOTH EYES
     Route: 065
  10. LEVOTHYROXINE SODIUM [Concomitant]
     Route: 048
  11. MEGACE [Concomitant]
     Dosage: 400MG PER 10ML (20ML DAILY)
     Route: 048
  12. MORPHINE SULFATE [Concomitant]
     Route: 048
  13. OXYCODONE [Concomitant]
     Indication: PAIN
     Dosage: AS REQUIRED
     Route: 048
  14. PANTOPRAZOLE SODIUM [Concomitant]
     Route: 065
  15. PROCHLORPERAZINE MALEATE [Concomitant]
     Indication: NAUSEA
     Dosage: AS REQUIRED
     Route: 065
  16. WARFARIN SODIUM [Concomitant]
     Route: 048
  17. ZOFRAN ODT [Concomitant]
     Dosage: PM
     Route: 048

REACTIONS (15)
  - Death [Fatal]
  - Hepatic cancer metastatic [Unknown]
  - Metastases to liver [Unknown]
  - Disease progression [Unknown]
  - Pulmonary mass [Unknown]
  - Pulmonary mass [Unknown]
  - Feeling abnormal [Unknown]
  - Jaundice [Unknown]
  - Oedema peripheral [Unknown]
  - Device malfunction [Unknown]
  - Hyperbilirubinaemia [Unknown]
  - Neutropenia [Unknown]
  - Dehydration [Unknown]
  - Nausea [Unknown]
  - Vomiting [Unknown]
